FAERS Safety Report 4469406-9 (Version None)
Quarter: 2004Q4

REPORT INFORMATION
  Report Type: 
  Country: None (occurrence: None)
  Receive Date: 20041008
  Receipt Date: 20040614
  Transmission Date: 20050328
  Serious: No
  Sender: FDA-Public Use
  Company Number: US-BRISTOL-MYERS SQUIBB COMPANY-12615217

PATIENT
  Age: 57 Year
  Sex: Female
  Weight: 61 kg

DRUGS (9)
  1. AVAPRO [Suspect]
     Indication: HYPERTENSION
     Dosage: ^POSSIBLY 300 MG, 1 TABLET, P.O., ONCE DAILY^
     Route: 048
  2. SYNTHROID [Concomitant]
  3. PREMARIN [Concomitant]
  4. HYDRALAZINE HCL [Concomitant]
  5. LEVOBUNOLOL HCL [Concomitant]
  6. VITAMIN C [Concomitant]
  7. CALCIUM [Concomitant]
  8. ASPIRIN [Concomitant]
  9. MULTI-VITAMIN [Concomitant]

REACTIONS (1)
  - CARDIAC MURMUR [None]
